FAERS Safety Report 23515431 (Version 1)
Quarter: 2024Q1

REPORT INFORMATION
  Report Type: 
  Country: None (occurrence: None)
  Receive Date: 20240213
  Receipt Date: 20240213
  Transmission Date: 20240410
  Serious: No
  Sender: FDA-Public Use
  Company Number: IT-ROCHE-3507015

PATIENT
  Weight: 73 kg

DRUGS (10)
  1. CEVOSTAMAB [Suspect]
     Active Substance: CEVOSTAMAB
     Dosage: ON 10/JAN/2024 HE WAS ADMINISTERED MOST RECENT DOSE OF CEVASTOMAB PRIOR TO AE/SAE AT 11:10 AM, LAST
     Dates: start: 20231025
  2. TOCILIZUMAB [Suspect]
     Active Substance: TOCILIZUMAB
     Dates: start: 20231102
  3. DIPHENHYDRAMINE [Concomitant]
     Active Substance: DIPHENHYDRAMINE
     Dosage: 25-50 MG
  4. DEXAMETHASONE [Concomitant]
     Active Substance: DEXAMETHASONE
  5. DEXAMETHASONE [Concomitant]
     Active Substance: DEXAMETHASONE
  6. LORATADINE [Concomitant]
     Active Substance: LORATADINE
  7. ACETAMINOPHEN [Concomitant]
     Active Substance: ACETAMINOPHEN
     Dosage: 500-1000 MG
  8. ENALAPRIL [Concomitant]
     Active Substance: ENALAPRIL
     Dates: start: 20231103
  9. FLUIMUCIL [Concomitant]
     Active Substance: ACETYLCYSTEINE
     Dates: start: 20231018
  10. VALACYCLOVIR [Concomitant]
     Active Substance: VALACYCLOVIR HYDROCHLORIDE
     Dates: start: 20231110

REACTIONS (1)
  - Febrile neutropenia [None]

NARRATIVE: CASE EVENT DATE: 20240203
